FAERS Safety Report 5162231-5 (Version None)
Quarter: 2006Q4

REPORT INFORMATION
  Report Type: 
  Country: None (occurrence: None)
  Receive Date: 20061121
  Receipt Date: 20061113
  Transmission Date: 20070319
  Serious: Yes (Hospitalization)
  Sender: FDA-Public Use
  Company Number: 2006-145495-NL

PATIENT
  Sex: Female

DRUGS (1)
  1. PURAGON [Suspect]

REACTIONS (1)
  - PAIN [None]
